FAERS Safety Report 15239867 (Version 1)
Quarter: 2018Q3

REPORT INFORMATION
  Report Type: Spontaneous
  Country: US (occurrence: US)
  Receive Date: 20180803
  Receipt Date: 20180803
  Transmission Date: 20181010
  Serious: No
  Sender: FDA-Public Use
  Company Number: US-009507513-1807USA013252

PATIENT
  Sex: Male

DRUGS (5)
  1. VALSARTAN. [Concomitant]
     Active Substance: VALSARTAN
  2. HYDROXYUREA. [Concomitant]
     Active Substance: HYDROXYUREA
     Indication: POLYCYTHAEMIA
     Dosage: 500 MG, 2 TO 3 TIMES A DAY.
  3. JAKAFI [Concomitant]
     Active Substance: RUXOLITINIB
     Dosage: 10 MG, BID
  4. KEYTRUDA [Suspect]
     Active Substance: PEMBROLIZUMAB
     Indication: SQUAMOUS CELL CARCINOMA OF SKIN
     Dosage: 200 MG, Q3W
     Route: 042
  5. KEYTRUDA [Suspect]
     Active Substance: PEMBROLIZUMAB
     Indication: MALIGNANT NERVOUS SYSTEM NEOPLASM

REACTIONS (7)
  - Eye pain [Not Recovered/Not Resolved]
  - White blood cell count increased [Unknown]
  - Wound [Recovered/Resolved]
  - Dry eye [Not Recovered/Not Resolved]
  - Product use in unapproved indication [Unknown]
  - Cranial nerve disorder [Not Recovered/Not Resolved]
  - Visual impairment [Not Recovered/Not Resolved]
